FAERS Safety Report 6642831-3 (Version None)
Quarter: 2010Q1

REPORT INFORMATION
  Report Type: 
  Country: None (occurrence: None)
  Receive Date: 20100319
  Receipt Date: 20100310
  Transmission Date: 20100710
  Serious: Yes (Hospitalization, Other)
  Sender: FDA-Public Use
  Company Number: US-ELI_LILLY_AND_COMPANY-US200910004071

PATIENT
  Sex: Male
  Weight: 88.889 kg

DRUGS (4)
  1. BYETTA [Suspect]
     Dosage: UNK, UNK
     Dates: start: 20070101
  2. METFORMIN [Concomitant]
     Indication: DIABETES MELLITUS
  3. DIOVAN [Concomitant]
  4. JANUVIA [Concomitant]
     Indication: DIABETES MELLITUS

REACTIONS (8)
  - ABDOMINAL PAIN [None]
  - FATIGUE [None]
  - GALLBLADDER DISORDER [None]
  - NAUSEA [None]
  - PANCREATITIS [None]
  - RENAL DISORDER [None]
  - VOMITING [None]
  - WEIGHT DECREASED [None]
